FAERS Safety Report 10767015 (Version 1)
Quarter: 2015Q1

REPORT INFORMATION
  Report Type: Report from Study
  Country: US (occurrence: US)
  Receive Date: 20150205
  Receipt Date: 20150205
  Transmission Date: 20150721
  Serious: Yes (Hospitalization, Other)
  Sender: FDA-Public Use
  Company Number: US-TEVA-524978USA

PATIENT
  Age: 17 Year
  Sex: Male

DRUGS (4)
  1. CLARAVIS [Suspect]
     Active Substance: ISOTRETINOIN
     Dosage: 40 MILLIGRAM DAILY;
     Route: 048
     Dates: start: 201401, end: 2014
  2. CLARAVIS [Suspect]
     Active Substance: ISOTRETINOIN
     Dosage: 10 MILLIGRAM DAILY;
     Route: 048
     Dates: start: 20140416, end: 201404
  3. CLARAVIS [Suspect]
     Active Substance: ISOTRETINOIN
     Indication: ACNE
     Dosage: 10 MILLIGRAM DAILY;
     Route: 048
     Dates: start: 20141017, end: 201410
  4. CLARAVIS [Suspect]
     Active Substance: ISOTRETINOIN
     Dosage: 20 MILLIGRAM DAILY;
     Route: 048
     Dates: start: 201401, end: 201401

REACTIONS (1)
  - Suicide attempt [Recovered/Resolved]

NARRATIVE: CASE EVENT DATE: 20141019
